FAERS Safety Report 20546772 (Version 1)
Quarter: 2022Q1

REPORT INFORMATION
  Report Type: Other
  Country: None (occurrence: US)
  Receive Date: 20220303
  Receipt Date: 20220303
  Transmission Date: 20220423
  Serious: Yes (Other)
  Sender: FDA-Public Use
  Company Number: US-Nova Laboratories Limited-2126413

PATIENT
  Age: 24 Month
  Sex: Male

DRUGS (2)
  1. PURIXAN [Suspect]
     Active Substance: MERCAPTOPURINE
     Indication: Acute lymphocytic leukaemia
  2. ALLOPURINOL [Suspect]
     Active Substance: ALLOPURINOL

REACTIONS (8)
  - Rash [Recovered/Resolved]
  - Mucosal inflammation [Recovered/Resolved]
  - Penile erythema [Recovered/Resolved]
  - Dysuria [Recovered/Resolved]
  - Nausea [Recovered/Resolved]
  - Alanine aminotransferase increased [Unknown]
  - Irritability [Recovered/Resolved]
  - Sluggishness [Unknown]
